FAERS Safety Report 18251810 (Version 5)
Quarter: 2020Q4

REPORT INFORMATION
  Report Type: Report from Study
  Country: CA (occurrence: CA)
  Receive Date: 20200910
  Receipt Date: 20201119
  Transmission Date: 20210113
  Serious: Yes (Hospitalization, Other)
  Sender: FDA-Public Use
  Company Number: CA-TAKEDA-2020TUS038026

PATIENT
  Age: 76 Year
  Sex: Female

DRUGS (1)
  1. VEDOLIZUMAB [Suspect]
     Active Substance: VEDOLIZUMAB
     Indication: COLITIS ULCERATIVE
     Dosage: 300 MILLIGRAM
     Route: 042
     Dates: start: 20200625

REACTIONS (4)
  - Blood pressure increased [Unknown]
  - Posterior reversible encephalopathy syndrome [Unknown]
  - Cerebrovascular accident [Unknown]
  - Vision blurred [Unknown]

NARRATIVE: CASE EVENT DATE: 20200827
